FAERS Safety Report 21641681 (Version 2)
Quarter: 2022Q4

REPORT INFORMATION
  Report Type: Spontaneous
  Country: JP (occurrence: None)
  Receive Date: 20221125
  Receipt Date: 20221205
  Transmission Date: 20230112
  Serious: Yes (Other)
  Sender: FDA-Public Use
  Company Number: JP-ROCHE-3225251

PATIENT
  Age: 5 Decade

DRUGS (1)
  1. RITUXAN [Suspect]
     Active Substance: RITUXIMAB
     Indication: Granulomatosis with polyangiitis
     Route: 041
     Dates: end: 20221112

REACTIONS (1)
  - Myocarditis [Unknown]

NARRATIVE: CASE EVENT DATE: 20221101
